FAERS Safety Report 5066878-6 (Version None)
Quarter: 2006Q3

REPORT INFORMATION
  Report Type: 
  Country: None (occurrence: None)
  Receive Date: 20060728
  Receipt Date: 20060718
  Transmission Date: 20061208
  Serious: Yes (Death)
  Sender: FDA-Public Use
  Company Number: S06-USA-02794-01

PATIENT
  Age: 58 Year
  Sex: Male

DRUGS (5)
  1. LEXAPRO [Suspect]
     Indication: ANXIETY
     Dosage: 10 MG QD PO
     Route: 048
     Dates: start: 20060626, end: 20060708
  2. LEXAPRO [Suspect]
     Indication: DEPRESSION
     Dosage: 10 MG QD PO
     Route: 048
     Dates: start: 20060626, end: 20060708
  3. TOPROL-XL [Concomitant]
  4. ALTOCOR [Concomitant]
  5. HYZAAR (LOSARTAN/HYDROCHLOROTHIAZIDE) [Concomitant]

REACTIONS (4)
  - COMPLETED SUICIDE [None]
  - ECONOMIC PROBLEM [None]
  - INJURY ASPHYXIATION [None]
  - LOSS OF EMPLOYMENT [None]
